FAERS Safety Report 5897443-6 (Version None)
Quarter: 2008Q3

REPORT INFORMATION
  Report Type: 
  Country: None (occurrence: None)
  Receive Date: 20080912
  Receipt Date: 20080825
  Transmission Date: 20090109
  Serious: Yes (Other)
  Sender: FDA-Public Use
  Company Number: 51792

PATIENT
  Age: 52 Year
  Sex: Female
  Weight: 105.6881 kg

DRUGS (1)
  1. CYTARABINE [Suspect]
     Indication: ACUTE MYELOID LEUKAEMIA
     Dosage: 6000MG Q 12HRS X 6
     Dates: start: 20080811, end: 20080814

REACTIONS (1)
  - DRUG INEFFECTIVE [None]
